FAERS Safety Report 20566072 (Version 6)
Quarter: 2023Q1

REPORT INFORMATION
  Report Type: Report from Study
  Country: JP (occurrence: JP)
  Receive Date: 20220308
  Receipt Date: 20230203
  Transmission Date: 20230418
  Serious: Yes (Hospitalization, Other)
  Sender: FDA-Public Use
  Company Number: JP-ASTELLAS-2022JP003617

PATIENT
  Age: 56 Year
  Sex: Male

DRUGS (11)
  1. ENFORTUMAB VEDOTIN [Suspect]
     Active Substance: ENFORTUMAB VEDOTIN
     Indication: Transitional cell carcinoma
     Route: 041
     Dates: start: 20220215, end: 20220222
  2. ENFORTUMAB VEDOTIN [Suspect]
     Active Substance: ENFORTUMAB VEDOTIN
     Route: 041
     Dates: start: 20220427, end: 20220513
  3. ENFORTUMAB VEDOTIN [Suspect]
     Active Substance: ENFORTUMAB VEDOTIN
     Route: 041
     Dates: start: 20220603, end: 20220610
  4. ENFORTUMAB VEDOTIN [Suspect]
     Active Substance: ENFORTUMAB VEDOTIN
     Route: 041
     Dates: start: 20220701, end: 20220909
  5. ENFORTUMAB VEDOTIN [Suspect]
     Active Substance: ENFORTUMAB VEDOTIN
     Route: 041
     Dates: start: 20220930, end: 20221014
  6. ENFORTUMAB VEDOTIN [Suspect]
     Active Substance: ENFORTUMAB VEDOTIN
     Route: 041
     Dates: start: 20221104, end: 20221104
  7. ENFORTUMAB VEDOTIN [Suspect]
     Active Substance: ENFORTUMAB VEDOTIN
     Route: 041
     Dates: start: 20221118, end: 20221125
  8. ENFORTUMAB VEDOTIN [Suspect]
     Active Substance: ENFORTUMAB VEDOTIN
     Route: 041
     Dates: start: 20221216, end: 20221223
  9. ENFORTUMAB VEDOTIN [Suspect]
     Active Substance: ENFORTUMAB VEDOTIN
     Route: 041
     Dates: start: 20230106
  10. PEMBROLIZUMAB [Concomitant]
     Active Substance: PEMBROLIZUMAB
     Indication: Transitional cell carcinoma
     Dosage: UNK UNK, UNKNOWN FREQ.
     Route: 065
     Dates: start: 20200115, end: 20220209
  11. LOCOID [Concomitant]
     Active Substance: HYDROCORTISONE BUTYRATE
     Indication: Rash
     Dosage: MODERATE AMOUNT, TWICE DAILY, APPLY TO SKIN ERUPTION WHEN SYMPTOMS ARE PRESENT
     Route: 061
     Dates: start: 20220224, end: 20220310

REACTIONS (5)
  - Skin discolouration [Not Recovered/Not Resolved]
  - Rash [Recovering/Resolving]
  - Mechanical ileus [Recovering/Resolving]
  - Nausea [Recovering/Resolving]
  - General physical health deterioration [Unknown]

NARRATIVE: CASE EVENT DATE: 20220223
